FAERS Safety Report 7706333-5 (Version None)
Quarter: 2011Q3

REPORT INFORMATION
  Report Type: 
  Country: None (occurrence: None)
  Receive Date: 20110824
  Receipt Date: 20110818
  Transmission Date: 20111222
  Serious: Yes (Hospitalization, Other)
  Sender: FDA-Public Use
  Company Number: US-ROCHE-798100

PATIENT
  Sex: Male
  Weight: 81.6 kg

DRUGS (2)
  1. COPEGUS [Suspect]
     Indication: HEPATITIS C
     Dosage: SINCE 3 MONTHS, 3 X 200 MG MORNING, 3 X 200 MG EVENING
     Route: 048
  2. PEGASYS [Suspect]
     Indication: HEPATITIS C
     Dosage: SINCE 3 MONTHS
     Route: 058

REACTIONS (2)
  - ALCOHOLISM [None]
  - PULMONARY EMBOLISM [None]
